FAERS Safety Report 10380353 (Version 1)
Quarter: 2014Q1

REPORT INFORMATION
  Report Type: Spontaneous
  Country: US (occurrence: None)
  Receive Date: 20140306
  Receipt Date: 20140306
  Transmission Date: 20141002
  Serious: Yes (Other)
  Sender: FDA-Public Use
  Company Number: 163-21880-13060844

PATIENT
  Age: 62 Year
  Sex: Female

DRUGS (13)
  1. REVLIMID (LENALIDOMIDE) (15 MILLIGRAM, CAPSULES) [Suspect]
     Indication: AMYLOIDOSIS
     Route: 048
     Dates: start: 200907
  2. FLUTICASONE [Concomitant]
  3. FUROSEMIDE [Concomitant]
  4. ONDANSETRON HCL [Concomitant]
  5. ATENOLOL [Concomitant]
  6. OMEPRAZOLE [Concomitant]
  7. OXYCODONE HCL [Concomitant]
  8. LEVOTHYROXINE [Concomitant]
  9. VITAMIN B12 (CYANOCOBALAMIN) [Concomitant]
  10. MULTIVITAMINS [Concomitant]
  11. VITAMIN C (ASCORBIC ACID) [Concomitant]
  12. VITAMIN D (ERGOCALCIFEROL) [Concomitant]
  13. IPRATROPIUM BROMIDE [Concomitant]

REACTIONS (2)
  - Nasopharyngitis [None]
  - Cervical dysplasia [None]
